FAERS Safety Report 15623529 (Version 1)
Quarter: 2018Q4

REPORT INFORMATION
  Report Type: Report from Study
  Country: US (occurrence: US)
  Receive Date: 20181115
  Receipt Date: 20181115
  Transmission Date: 20190205
  Serious: Yes (Other)
  Sender: FDA-Public Use
  Company Number: US-GILEAD-2018-0374719

PATIENT
  Age: 32 Year
  Sex: Male

DRUGS (14)
  1. TAMSULOSIN [Concomitant]
     Active Substance: TAMSULOSIN
  2. ORKAMBI [Concomitant]
     Active Substance: IVACAFTOR\LUMACAFTOR
  3. PANTOPRAZOLE [Concomitant]
     Active Substance: PANTOPRAZOLE
  4. SPIRIVA [Concomitant]
     Active Substance: TIOTROPIUM BROMIDE MONOHYDRATE
  5. IBUPROFEN. [Concomitant]
     Active Substance: IBUPROFEN
  6. AZTREONAM LYSINE [Suspect]
     Active Substance: AZTREONAM LYSINE
     Indication: CYSTIC FIBROSIS
     Dosage: 1 ML, TID
     Route: 065
     Dates: start: 20141016
  7. CREON [Concomitant]
     Active Substance: PANCRELIPASE AMYLASE\PANCRELIPASE LIPASE\PANCRELIPASE PROTEASE
  8. ADVAIR HFA [Concomitant]
     Active Substance: FLUTICASONE PROPIONATE\SALMETEROL XINAFOATE
  9. HUMALOG [Concomitant]
     Active Substance: INSULIN LISPRO
  10. LANTUS [Concomitant]
     Active Substance: INSULIN GLARGINE
  11. MORPHINE SULFATE. [Concomitant]
     Active Substance: MORPHINE SULFATE
  12. ONDANSETRON [Concomitant]
     Active Substance: ONDANSETRON
  13. PULMOZYME [Concomitant]
     Active Substance: DORNASE ALFA
  14. VENTOLIN [Concomitant]
     Active Substance: ALBUTEROL SULFATE

REACTIONS (1)
  - Nephrolithiasis [Unknown]

NARRATIVE: CASE EVENT DATE: 20181108
